FAERS Safety Report 8154689-4 (Version None)
Quarter: 2012Q1

REPORT INFORMATION
  Report Type: 
  Country: None (occurrence: None)
  Receive Date: 20120221
  Receipt Date: 20120208
  Transmission Date: 20120608
  Serious: Yes (Hospitalization, Other)
  Sender: FDA-Public Use
  Company Number: US-PFIZER INC-2011239034

PATIENT
  Age: 81 Year
  Sex: Female

DRUGS (4)
  1. DIGOXIN [Suspect]
     Indication: PRODUCT USED FOR UNKNOWN INDICATION
     Dosage: 0.125 MG, DAILY
     Route: 065
  2. METFORMIN HYDROCHLORIDE [Concomitant]
     Dosage: UNK
  3. RAMIPRIL [Suspect]
     Indication: PRODUCT USED FOR UNKNOWN INDICATION
     Dosage: 10 MG, DAILY
     Route: 065
  4. FUROSEMIDE [Concomitant]
     Dosage: UNK

REACTIONS (7)
  - ELECTROCARDIOGRAM QT SHORTENED [None]
  - ELECTROCARDIOGRAM T WAVE PEAKED [None]
  - DYSPNOEA [None]
  - NODAL RHYTHM [None]
  - CARDIOACTIVE DRUG LEVEL INCREASED [None]
  - ASTHENIA [None]
  - HYPERKALAEMIA [None]
